FAERS Safety Report 8025577-9 (Version None)
Quarter: 2012Q1

REPORT INFORMATION
  Report Type: 
  Country: None (occurrence: None)
  Receive Date: 20120105
  Receipt Date: 20111228
  Transmission Date: 20120608
  Serious: Yes (Hospitalization)
  Sender: FDA-Public Use
  Company Number: JP-ABBOTT-11P-087-0874175-00

PATIENT
  Sex: Male

DRUGS (4)
  1. ACTOS [Concomitant]
     Indication: TYPE 2 DIABETES MELLITUS
     Route: 048
     Dates: start: 20030828, end: 20110721
  2. LEUPROLIDE ACETATE [Suspect]
     Indication: PROSTATE CANCER
     Route: 058
     Dates: start: 20110528, end: 20110528
  3. CASODEX [Suspect]
     Indication: PROSTATE CANCER
     Route: 048
     Dates: start: 20110514, end: 20110721
  4. URSO 250 [Concomitant]
     Indication: CHOLELITHIASIS
     Route: 048
     Dates: start: 20070615, end: 20110721

REACTIONS (1)
  - INTERSTITIAL LUNG DISEASE [None]
